FAERS Safety Report 10872581 (Version 1)
Quarter: 2015Q1

REPORT INFORMATION
  Report Type: Spontaneous
  Country: US (occurrence: US)
  Receive Date: 20150227
  Receipt Date: 20150227
  Transmission Date: 20150721
  Serious: Yes (Other)
  Sender: FDA-Public Use
  Company Number: US-ALKEM-000884

PATIENT
  Age: 55 Year
  Sex: Male

DRUGS (15)
  1. CLOPIDOGREL [Concomitant]
     Active Substance: CLOPIDOGREL BISULFATE
  2. HYDRALAZINE [Concomitant]
     Active Substance: HYDRALAZINE HYDROCHLORIDE
  3. EPOETIN [Concomitant]
     Active Substance: ERYTHROPOIETIN
  4. OXYCODONE/OXYCODONE HYDROCHLORIDE/OXYCODONE PECTINATE/OXYCODONE TEREPHTHALATE [Suspect]
     Active Substance: OXYCODONE
     Indication: PRODUCT USED FOR UNKNOWN INDICATION
  5. SEVELAMER/SEVELAMER HYDROCHLORIDE [Concomitant]
  6. VANCOMYCIN [Concomitant]
     Active Substance: VANCOMYCIN
     Indication: LOCALISED INFECTION
  7. CLONIDINE. [Concomitant]
     Active Substance: CLONIDINE
  8. ATORVASTATIN [Concomitant]
     Active Substance: ATORVASTATIN
  9. METOPROLOL [Concomitant]
     Active Substance: METOPROLOL
  10. PIPERACILLIN/TAZOBACTAM [Concomitant]
     Indication: LOCALISED INFECTION
  11. HYDROMORPHONE/HYDROMORPHONE HYDROCHLORIDE [Suspect]
     Active Substance: HYDROMORPHONE
     Indication: PRODUCT USED FOR UNKNOWN INDICATION
  12. LANTHANUM CARBONATE. [Concomitant]
     Active Substance: LANTHANUM CARBONATE
  13. AMLODIPINE [Suspect]
     Active Substance: AMLODIPINE BESYLATE
     Indication: PRODUCT USED FOR UNKNOWN INDICATION
  14. GABAPENTIN. [Suspect]
     Active Substance: GABAPENTIN
     Indication: NEURALGIA
     Dosage: 600 MG TOTAL DAILY
  15. INSULIN GLARGINE [Concomitant]
     Active Substance: INSULIN GLARGINE

REACTIONS (8)
  - Localised infection [Unknown]
  - Toxicity to various agents [Unknown]
  - Confusional state [Unknown]
  - Myoclonus [Recovered/Resolved]
  - Tremor [None]
  - Hypotension [Unknown]
  - Lethargy [Unknown]
  - Mental status changes [Recovered/Resolved]
